FAERS Safety Report 7995486-X (Version None)
Quarter: 2011Q4

REPORT INFORMATION
  Report Type: 
  Country: None (occurrence: None)
  Receive Date: 20111220
  Receipt Date: 20111213
  Transmission Date: 20120403
  Serious: No
  Sender: FDA-Public Use
  Company Number: US-B.I. PHARMACEUTICALS,INC./RIDGEFIELD-2010-BP-13921BP

PATIENT
  Age: 77 Year
  Sex: Male

DRUGS (10)
  1. PRADAXA [Suspect]
     Indication: CEREBROVASCULAR ACCIDENT PROPHYLAXIS
  2. VALACYCLOVIR [Concomitant]
     Indication: HERPES SIMPLEX
  3. ZANTAC [Concomitant]
     Indication: GASTROOESOPHAGEAL REFLUX DISEASE
  4. LOSARTAN POTASSIUM AND HYDROCHLOROTHIAZIDE [Concomitant]
     Indication: HYPERTENSION
  5. FINASTERIDE [Concomitant]
     Indication: PROSTATOMEGALY
  6. AMLODIPINE [Concomitant]
     Indication: CARDIAC DISORDER
  7. LANSOPRAZOLE [Concomitant]
     Indication: GASTROOESOPHAGEAL REFLUX DISEASE
  8. ASPIRIN [Concomitant]
     Indication: CARDIAC DISORDER
  9. TAMSULOSIN HCL [Concomitant]
     Indication: PROSTATOMEGALY
  10. PRADAXA [Suspect]
     Indication: ATRIAL FIBRILLATION
     Dosage: 300 MG
     Route: 048
     Dates: start: 20101101

REACTIONS (3)
  - HAEMATURIA [None]
  - PAIN IN EXTREMITY [None]
  - PAIN [None]
